FAERS Safety Report 10678301 (Version 3)
Quarter: 2015Q3

REPORT INFORMATION
  Report Type: Spontaneous
  Country: MU (occurrence: DK)
  Receive Date: 20141229
  Receipt Date: 20150828
  Transmission Date: 20151125
  Serious: Yes (Hospitalization, Disabling, Other)
  Sender: FDA-Public Use
  Company Number: MU-MYLANLABS-2014M1015490

PATIENT

DRUGS (4)
  1. FONDAPARINUX [Suspect]
     Active Substance: FONDAPARINUX
     Indication: INTRACARDIAC THROMBUS
  2. MAGNYL                             /00002701/ [Suspect]
     Active Substance: ASPIRIN
     Indication: INTRACARDIAC THROMBUS
     Dosage: UNK
     Route: 048
     Dates: start: 20130418
  3. FONDAPARINUX [Suspect]
     Active Substance: FONDAPARINUX
     Indication: THROMBOSIS PROPHYLAXIS
  4. BRILIQUE [Suspect]
     Active Substance: TICAGRELOR
     Indication: INTRACARDIAC THROMBUS
     Dosage: UNK
     Route: 048
     Dates: start: 20130418

REACTIONS (15)
  - Spinal cord haematoma [Recovered/Resolved with Sequelae]
  - Gait disturbance [Not Recovered/Not Resolved]
  - Muscle tightness [Not Recovered/Not Resolved]
  - Urinary retention [Not Recovered/Not Resolved]
  - Gastrointestinal disorder [Unknown]
  - Faecal incontinence [Not Recovered/Not Resolved]
  - Diplegia [Recovered/Resolved with Sequelae]
  - Dysuria [Unknown]
  - Balance disorder [Not Recovered/Not Resolved]
  - Paralysis [Unknown]
  - Musculoskeletal stiffness [Not Recovered/Not Resolved]
  - Faecal incontinence [Unknown]
  - Pain [Unknown]
  - Back pain [Unknown]
  - Bladder catheterisation [Not Recovered/Not Resolved]

NARRATIVE: CASE EVENT DATE: 20130419
